FAERS Safety Report 4647042-9 (Version None)
Quarter: 2005Q2

REPORT INFORMATION
  Report Type: 
  Country: None (occurrence: None)
  Receive Date: 20050331
  Receipt Date: 20041207
  Transmission Date: 20051028
  Serious: No
  Sender: FDA-Public Use
  Company Number: 04P-163-0264982-00

PATIENT
  Age: 66 Year
  Sex: Male
  Weight: 90.7194 kg

DRUGS (18)
  1. HUMIRA [Suspect]
     Indication: RHEUMATOID ARTHRITIS
     Dosage: 40 MG, 1 IN 2 WK, SUBCUTANEOUS;  40 MG, 1 IN 1 WK, SUBCUTANEOUS
     Route: 058
     Dates: start: 20030101, end: 20041201
  2. HUMIRA [Suspect]
     Indication: RHEUMATOID ARTHRITIS
     Dosage: 40 MG, 1 IN 2 WK, SUBCUTANEOUS;  40 MG, 1 IN 1 WK, SUBCUTANEOUS
     Route: 058
     Dates: start: 20041201
  3. SALBUTAMOL [Concomitant]
  4. SERETIDE MITE [Concomitant]
  5. CELECOXIB [Concomitant]
  6. LEFLUNOMIDE [Concomitant]
  7. FOLIC ACID [Concomitant]
  8. FAMOTIDINE [Concomitant]
  9. DYAZIDE [Concomitant]
  10. TRAMADOL HCL [Concomitant]
  11. CENTRUM [Concomitant]
  12. CALCIUM CARBONATE [Concomitant]
  13. COMBIVENT [Concomitant]
  14. LEVOTHYROXINE SODIUM [Concomitant]
  15. PREDNISONE TAB [Concomitant]
  16. LEXAPRO [Concomitant]
  17. FLUTICASONE PROPIONATE [Concomitant]
  18. OTC BILBERRY EXTRACT [Concomitant]

REACTIONS (6)
  - CONDITION AGGRAVATED [None]
  - COUGH [None]
  - HYPOAESTHESIA [None]
  - MYALGIA [None]
  - PARAESTHESIA [None]
  - PERIPHERAL COLDNESS [None]
